APPROVED DRUG PRODUCT: CLOBETASOL PROPIONATE
Active Ingredient: CLOBETASOL PROPIONATE
Strength: 0.05%
Dosage Form/Route: GEL;TOPICAL
Application: A075027 | Product #001 | TE Code: AB
Applicant: PADAGIS US LLC
Approved: Oct 31, 1997 | RLD: No | RS: No | Type: RX